FAERS Safety Report 23161658 (Version 1)
Quarter: 2023Q4

REPORT INFORMATION
  Report Type: Spontaneous
  Country: FR (occurrence: FR)
  Receive Date: 20231108
  Receipt Date: 20231108
  Transmission Date: 20240109
  Serious: Yes (Hospitalization)
  Sender: FDA-Public Use
  Company Number: None

PATIENT
  Age: 57 Year
  Sex: Female

DRUGS (1)
  1. QUTENZA [Suspect]
     Active Substance: CAPSAICIN
     Indication: Product used for unknown indication
     Dosage: UNK
     Route: 003
     Dates: start: 20230203, end: 20230727

REACTIONS (4)
  - Blister [Not Recovered/Not Resolved]
  - Burning sensation [Recovered/Resolved]
  - Erythema [Recovering/Resolving]
  - Paronychia [Recovered/Resolved]

NARRATIVE: CASE EVENT DATE: 20230728
